FAERS Safety Report 18313622 (Version 1)
Quarter: 2020Q3

REPORT INFORMATION
  Report Type: Spontaneous
  Country: US (occurrence: US)
  Receive Date: 20200925
  Receipt Date: 20200925
  Transmission Date: 20201103
  Serious: Yes (Hospitalization)
  Sender: FDA-Public Use
  Company Number: US-JNJFOC-A-NJ2019-196758

PATIENT
  Age: 24 Year
  Sex: Female
  Weight: 51.3 kg

DRUGS (4)
  1. OPSUMIT [Suspect]
     Active Substance: MACITENTAN
     Indication: PULMONARY ARTERIAL HYPERTENSION
     Dosage: 10 MG, QD
     Route: 048
  2. VELETRI [Suspect]
     Active Substance: EPOPROSTENOL
     Indication: PULMONARY ARTERIAL HYPERTENSION
     Dosage: 30.6 NG/KG, PER MIN
     Route: 042
  3. VELETRI [Suspect]
     Active Substance: EPOPROSTENOL
     Dosage: 35.4 NG/KG, PER MIN
     Route: 042
  4. VELETRI [Suspect]
     Active Substance: EPOPROSTENOL
     Dosage: 39NG/KG/MIN
     Route: 042

REACTIONS (13)
  - Epistaxis [Unknown]
  - Infection [Unknown]
  - Condition aggravated [Unknown]
  - Pain in jaw [Not Recovered/Not Resolved]
  - Dyspnoea exertional [Not Recovered/Not Resolved]
  - Hospitalisation [Unknown]
  - Pulmonary arterial hypertension [Unknown]
  - Haemoptysis [Unknown]
  - Throat irritation [Unknown]
  - Swelling [Unknown]
  - Chest pain [Not Recovered/Not Resolved]
  - Sinusitis [Recovering/Resolving]
  - Lacrimation increased [Unknown]
